FAERS Safety Report 6369403-2 (Version None)
Quarter: 2009Q3

REPORT INFORMATION
  Report Type: 
  Country: None (occurrence: None)
  Receive Date: 20090917
  Receipt Date: 20090910
  Transmission Date: 20100115
  Serious: Yes (Hospitalization)
  Sender: FDA-Public Use
  Company Number: 2009AL001343

PATIENT
  Sex: Male

DRUGS (18)
  1. DIGOXIN [Suspect]
     Dosage: 0.25MG, DAILY, PO
     Route: 048
  2. LEXAPRO [Concomitant]
  3. PLAVIX [Concomitant]
  4. ARICEPT [Concomitant]
  5. SEROQUEL [Concomitant]
  6. ALBUTEROL [Concomitant]
  7. REQUIP [Concomitant]
  8. FLOMAX [Concomitant]
  9. SPIRIVA [Concomitant]
  10. ALPRAZOLAM [Concomitant]
  11. SINGULAIR [Concomitant]
  12. XANAX [Concomitant]
  13. FLOMAX [Concomitant]
  14. COREG [Concomitant]
  15. POTASSIUM CHLORIDE [Concomitant]
  16. DILTIAZEM [Concomitant]
  17. FUROSEMIDE [Concomitant]
  18. ADVAIR DISKUS 100/50 [Concomitant]

REACTIONS (27)
  - ACTIVITIES OF DAILY LIVING IMPAIRED [None]
  - ANXIETY [None]
  - ATRIAL FIBRILLATION [None]
  - BRADYCARDIA [None]
  - CARDIOMEGALY [None]
  - CHRONIC OBSTRUCTIVE PULMONARY DISEASE [None]
  - DECREASED APPETITE [None]
  - DIASTOLIC DYSFUNCTION [None]
  - DYSPNOEA [None]
  - ECONOMIC PROBLEM [None]
  - FAMILY STRESS [None]
  - HAEMOTHORAX [None]
  - ILL-DEFINED DISORDER [None]
  - INCREASED TENDENCY TO BRUISE [None]
  - INJURY [None]
  - NON-SMALL CELL LUNG CANCER STAGE IIIB [None]
  - OEDEMA PERIPHERAL [None]
  - PAIN [None]
  - PERIODIC LIMB MOVEMENT DISORDER [None]
  - PLEURAL EFFUSION [None]
  - PULMONARY OEDEMA [None]
  - RENAL FAILURE [None]
  - SLEEP APNOEA SYNDROME [None]
  - SOCIAL PROBLEM [None]
  - SURGERY [None]
  - THERAPEUTIC AGENT TOXICITY [None]
  - WEIGHT INCREASED [None]
